FAERS Safety Report 12456118 (Version 1)
Quarter: 2016Q2

REPORT INFORMATION
  Report Type: Spontaneous
  Country: TR (occurrence: TR)
  Receive Date: 20160610
  Receipt Date: 20160610
  Transmission Date: 20160815
  Serious: Yes (Other)
  Sender: FDA-Public Use
  Company Number: TR-APOTEX-2016AP008902

PATIENT
  Age: 42 Year
  Sex: Male

DRUGS (4)
  1. ASPIRIN                            /00002701/ [Suspect]
     Active Substance: ASPIRIN
     Indication: CORONARY ARTERY OCCLUSION
     Dosage: 300 MG, UNKNOWN
     Route: 065
  2. TIROFIBAN [Suspect]
     Active Substance: TIROFIBAN
     Indication: CORONARY ARTERY OCCLUSION
     Dosage: UNK UNK, UNKNOWN
     Route: 065
  3. AS-CLODIP FILM TABLET [Suspect]
     Active Substance: CLOPIDOGREL BISULFATE
     Indication: CORONARY ARTERY OCCLUSION
     Dosage: 600 MG, UNKNOWN
     Route: 065
  4. HEPARIN [Suspect]
     Active Substance: HEPARIN SODIUM
     Indication: CORONARY ARTERY OCCLUSION
     Dosage: 7500 UNITS
     Route: 065

REACTIONS (2)
  - Pulmonary alveolar haemorrhage [Recovering/Resolving]
  - Haemoglobin decreased [None]
